FAERS Safety Report 10145079 (Version 2)
Quarter: 2014Q2

REPORT INFORMATION
  Report Type: Report from Study
  Country: US (occurrence: US)
  Receive Date: 20140501
  Receipt Date: 20140508
  Transmission Date: 20141212
  Serious: Yes (Hospitalization)
  Sender: FDA-Public Use
  Company Number: US-BIOGENIDEC-2014BI039369

PATIENT
  Age: 33 Year
  Sex: Female

DRUGS (1)
  1. TYSABRI [Suspect]
     Indication: MULTIPLE SCLEROSIS
     Route: 042
     Dates: start: 20120813, end: 20130724

REACTIONS (6)
  - Gastrectomy [Unknown]
  - Hernia [Unknown]
  - Dysarthria [Not Recovered/Not Resolved]
  - Speech disorder [Not Recovered/Not Resolved]
  - Multiple sclerosis relapse [Not Recovered/Not Resolved]
  - Multiple sclerosis [Not Recovered/Not Resolved]
